FAERS Safety Report 18235272 (Version 1)
Quarter: 2020Q3

REPORT INFORMATION
  Report Type: Report from Study
  Country: None (occurrence: US)
  Receive Date: 20200904
  Receipt Date: 20200904
  Transmission Date: 20201103
  Serious: Yes (Other)
  Sender: FDA-Public Use
  Company Number: US-ABBVIE-20K-163-3375476-00

PATIENT
  Sex: Female

DRUGS (1)
  1. HUMIRA [Suspect]
     Active Substance: ADALIMUMAB
     Indication: CROHN^S DISEASE
     Dosage: CITRATE FREE
     Route: 058

REACTIONS (8)
  - Weight decreased [Recovered/Resolved]
  - Diabetes mellitus [Unknown]
  - Gastric haemorrhage [Unknown]
  - Sleep apnoea syndrome [Unknown]
  - Diarrhoea [Recovering/Resolving]
  - Blood pressure abnormal [Unknown]
  - Haemoptysis [Unknown]
  - Constipation [Recovering/Resolving]
